FAERS Safety Report 15703963 (Version 1)
Quarter: 2018Q4

REPORT INFORMATION
  Report Type: Spontaneous
  Country: US (occurrence: US)
  Receive Date: 20181210
  Receipt Date: 20181210
  Transmission Date: 20190205
  Serious: No
  Sender: FDA-Public Use
  Company Number: US-CELGENEUS-USA-20181200418

PATIENT
  Age: 75 Year
  Sex: Female
  Weight: 82.17 kg

DRUGS (2)
  1. POMALYST [Suspect]
     Active Substance: POMALIDOMIDE
     Indication: PLASMA CELL MYELOMA RECURRENT
     Dosage: 4 MILLIGRAM
     Route: 048
     Dates: start: 20181101
  2. POMALYST [Suspect]
     Active Substance: POMALIDOMIDE
     Indication: PLASMA CELL MYELOMA

REACTIONS (6)
  - Feeling jittery [Unknown]
  - Dizziness [Unknown]
  - Vision blurred [Unknown]
  - Unevaluable event [Unknown]
  - Movement disorder [Unknown]
  - Hypertension [Unknown]

NARRATIVE: CASE EVENT DATE: 201811
